FAERS Safety Report 18864884 (Version 1)
Quarter: 2021Q1

REPORT INFORMATION
  Report Type: Spontaneous
  Country: US (occurrence: US)
  Receive Date: 20210208
  Receipt Date: 20210208
  Transmission Date: 20210420
  Serious: Yes (Other)
  Sender: FDA-Public Use
  Company Number: None

PATIENT
  Age: 56 Year
  Sex: Female
  Weight: 56.7 kg

DRUGS (10)
  1. LETROZOLE. [Concomitant]
     Active Substance: LETROZOLE
  2. GABPENTIN [Concomitant]
  3. HYDROCORTISONE ANI?ITCH [Concomitant]
  4. ZOMETA [Concomitant]
     Active Substance: ZOLEDRONIC ACID
  5. DEXAMETHASONE. [Concomitant]
     Active Substance: DEXAMETHASONE
  6. EXEMESTANE. [Concomitant]
     Active Substance: EXEMESTANE
  7. ASPIRIN. [Concomitant]
     Active Substance: ASPIRIN
  8. ACYCLOVIR. [Concomitant]
     Active Substance: ACYCLOVIR
  9. NINLARO [Suspect]
     Active Substance: IXAZOMIB CITRATE
     Indication: PLASMA CELL MYELOMA
     Dosage: ?          OTHER FREQUENCY:WEEKLY;?
     Route: 048
     Dates: start: 20210208, end: 20210208
  10. DARZALEX [Concomitant]
     Active Substance: DARATUMUMAB

REACTIONS (2)
  - Nausea [None]
  - Vomiting [None]

NARRATIVE: CASE EVENT DATE: 20210208
